FAERS Safety Report 5159548-7 (Version None)
Quarter: 2006Q4

REPORT INFORMATION
  Report Type: 
  Country: None (occurrence: None)
  Receive Date: 20061129
  Receipt Date: 20060828
  Transmission Date: 20070319
  Serious: Yes (Death)
  Sender: FDA-Public Use
  Company Number: US-BAYER-200613644BCC

PATIENT
  Sex: Male

DRUGS (1)
  1. ALEVE [Suspect]
     Indication: FEELING ABNORMAL
     Dosage: UNIT DOSE: 220 MG
     Route: 048

REACTIONS (1)
  - GASTRIC HAEMORRHAGE [None]
